FAERS Safety Report 25228679 (Version 3)
Quarter: 2025Q2

REPORT INFORMATION
  Report Type: Spontaneous
  Country: JP (occurrence: JP)
  Receive Date: 20250423
  Receipt Date: 20250626
  Transmission Date: 20250717
  Serious: Yes (Other)
  Sender: ASTELLAS
  Company Number: JP-ASTELLAS-2025-AER-018327

PATIENT
  Age: 76 Year
  Sex: Female

DRUGS (2)
  1. VYLOY [Suspect]
     Active Substance: ZOLBETUXIMAB-CLZB
     Indication: Small intestine carcinoma
     Route: 042
     Dates: start: 20250325, end: 20250325
  2. VYLOY [Suspect]
     Active Substance: ZOLBETUXIMAB-CLZB
     Indication: Metastases to stomach
     Route: 042
     Dates: start: 20250603

REACTIONS (9)
  - Delirium [Not Recovered/Not Resolved]
  - Diarrhoea [Recovering/Resolving]
  - Somnolence [Not Recovered/Not Resolved]
  - Cognitive disorder [Not Recovered/Not Resolved]
  - Oedema [Recovered/Resolved]
  - Hypoalbuminaemia [Recovered/Resolved]
  - Hepatic function abnormal [Recovered/Resolved]
  - Nausea [Unknown]
  - Product use in unapproved indication [Unknown]

NARRATIVE: CASE EVENT DATE: 20250325
